FAERS Safety Report 12851447 (Version 1)
Quarter: 2016Q4

REPORT INFORMATION
  Report Type: Spontaneous
  Country: FR (occurrence: FR)
  Receive Date: 20161016
  Receipt Date: 20161016
  Transmission Date: 20170207
  Serious: Yes (Other)
  Sender: FDA-Public Use
  Company Number: FR-ABBVIE-16P-056-1754759-00

PATIENT
  Age: 50 Year
  Sex: Female

DRUGS (7)
  1. TEMESTA [Concomitant]
     Active Substance: LORAZEPAM
     Indication: PRODUCT USED FOR UNKNOWN INDICATION
  2. SOLIAN [Concomitant]
     Active Substance: AMISULPRIDE
     Indication: PRODUCT USED FOR UNKNOWN INDICATION
     Dates: end: 201609
  3. DEPAKOTE [Suspect]
     Active Substance: DIVALPROEX SODIUM
     Route: 048
  4. LEPTICUR [Concomitant]
     Active Substance: TROPATEPINE HYDROCHLORIDE
     Indication: PRODUCT USED FOR UNKNOWN INDICATION
  5. LOXAPAC [Concomitant]
     Active Substance: LOXAPINE SUCCINATE
     Indication: PRODUCT USED FOR UNKNOWN INDICATION
  6. LEXOMIL [Concomitant]
     Active Substance: BROMAZEPAM
     Indication: PRODUCT USED FOR UNKNOWN INDICATION
  7. DEPAKOTE [Suspect]
     Active Substance: DIVALPROEX SODIUM
     Indication: AFFECTIVE DISORDER
     Route: 048
     Dates: start: 2014

REACTIONS (6)
  - Fatigue [Unknown]
  - Memory impairment [Unknown]
  - Weight increased [Unknown]
  - Muscular weakness [Unknown]
  - Arthralgia [Unknown]
  - Myalgia [Unknown]
